FAERS Safety Report 9821240 (Version 1)
Quarter: 2013Q4

REPORT INFORMATION
  Report Type: Spontaneous
  Country: US (occurrence: None)
  Receive Date: 20131028
  Receipt Date: 20131028
  Transmission Date: 20140711
  Serious: No
  Sender: FDA-Public Use
  Company Number: 2013US001082

PATIENT
  Age: 66 Year
  Sex: Male
  Weight: 86 kg

DRUGS (7)
  1. ICLUSIG [Suspect]
     Indication: CHRONIC MYELOID LEUKAEMIA
     Route: 048
     Dates: start: 20130122, end: 20130206
  2. SOTALOL (SOTALOL) [Concomitant]
  3. LISINOPRUIL (LISINOPRIL) [Concomitant]
  4. ATORVASTATIN (ATORVASTATIN) [Concomitant]
  5. METFORMIN (METFORMIN) [Concomitant]
  6. JANUVIA (SITAGLIPTIN PHOSPHATE) [Concomitant]
  7. LASIX (FUROSEMIDE) [Concomitant]

REACTIONS (6)
  - Pain in extremity [None]
  - Lipase increased [None]
  - Blood alkaline phosphatase increased [None]
  - Aspartate aminotransferase increased [None]
  - Alanine aminotransferase increased [None]
  - Insomnia [None]
